FAERS Safety Report 12565039 (Version 2)
Quarter: 2016Q3

REPORT INFORMATION
  Report Type: Report from Study
  Country: JP (occurrence: JP)
  Receive Date: 20160718
  Receipt Date: 20160805
  Transmission Date: 20161109
  Serious: Yes (Hospitalization)
  Sender: FDA-Public Use
  Company Number: JP-ROCHE-1692182

PATIENT
  Age: 69 Year
  Sex: Female
  Weight: 54.6 kg

DRUGS (29)
  1. PACLITAXEL. [Suspect]
     Active Substance: PACLITAXEL
     Indication: NON-SMALL CELL LUNG CANCER
     Dosage: MOST RECENT DOSE PRIOR TO THE EVENT ON 22/DEC/2015
     Route: 042
     Dates: start: 20151030
  2. DIQUAS [Concomitant]
     Active Substance: DIQUAFOSOL TETRASODIUM
     Indication: DRY EYE
     Dosage: DIQUAS OPHTHALMIC SOLUTION 3%
     Route: 065
  3. RESTAMIN A KOWA [Concomitant]
     Dosage: INDICATION- PREVENTION OF ALLERGIC REACTION
     Route: 065
     Dates: start: 20151127, end: 20151127
  4. ZANTAC [Concomitant]
     Active Substance: RANITIDINE HYDROCHLORIDE
     Dosage: SELECT IF ONGOING=NO
     Route: 065
     Dates: start: 20151222, end: 20151222
  5. CEFEPIME DIHYDROCHLORIDE [Concomitant]
     Active Substance: CEFEPIME HYDROCHLORIDE
     Indication: PROPHYLAXIS
     Route: 042
     Dates: start: 20151203, end: 20151208
  6. LACTEC [Concomitant]
     Active Substance: CALCIUM CHLORIDE ANHYDROUS\POTASSIUM CHLORIDE\SODIUM CHLORIDE\SODIUM LACTATE
     Indication: ATRIAL TACHYCARDIA
     Dosage: SELECT IF ONGOING=NO
     Route: 065
     Dates: start: 20151221, end: 20151221
  7. ALOXI [Concomitant]
     Active Substance: PALONOSETRON HYDROCHLORIDE
     Indication: VOMITING
     Dosage: SELECT IF ONGOING=NO
     Route: 042
     Dates: start: 20151222, end: 20151222
  8. LOXOPROFEN EMEC [Concomitant]
     Active Substance: LOXOPROFEN
     Indication: ARTHRALGIA
     Route: 065
     Dates: start: 20151130
  9. GASTER [Concomitant]
     Active Substance: FAMOTIDINE
     Indication: GASTRITIS PROPHYLAXIS
     Route: 065
     Dates: start: 20151110
  10. ALLELOCK [Concomitant]
     Active Substance: OLOPATADINE HYDROCHLORIDE
     Indication: ERYTHEMA
     Route: 065
     Dates: start: 20151128, end: 20160112
  11. CEFEPIME DIHYDROCHLORIDE [Concomitant]
     Active Substance: CEFEPIME HYDROCHLORIDE
     Dosage: SELECT IF ONGOING=NO
     Route: 042
     Dates: start: 20151225, end: 20151230
  12. ATELEC [Concomitant]
     Active Substance: CILNIDIPINE
     Indication: HYPERTENSION
     Route: 065
     Dates: start: 20151116
  13. RESTAMIN A KOWA [Concomitant]
     Dosage: SELECT IF ONGOING=NO
     Route: 065
     Dates: start: 20151222, end: 20151222
  14. ZANTAC [Concomitant]
     Active Substance: RANITIDINE HYDROCHLORIDE
     Dosage: INDICATION- PREVENTION OF ALLERGIC REACTION
     Route: 065
     Dates: start: 20151127, end: 20151127
  15. ALOXI [Concomitant]
     Active Substance: PALONOSETRON HYDROCHLORIDE
     Indication: NAUSEA
     Route: 042
     Dates: start: 20151127, end: 20151127
  16. ALLELOCK [Concomitant]
     Active Substance: OLOPATADINE HYDROCHLORIDE
     Route: 065
     Dates: start: 20160113
  17. GRAN [Concomitant]
     Active Substance: FILGRASTIM
     Indication: NEUTROPHIL COUNT DECREASED
     Route: 065
     Dates: start: 20151203, end: 20151206
  18. ACELIO [Concomitant]
     Active Substance: ACETAMINOPHEN
     Indication: PYREXIA
     Route: 042
     Dates: start: 20151224, end: 20151225
  19. CARBOPLATIN. [Suspect]
     Active Substance: CARBOPLATIN
     Indication: NON-SMALL CELL LUNG CANCER
     Dosage: MOST RECENT DOSE PRIOR TO THE EVENT ON 22/DEC/2015
     Route: 042
     Dates: start: 20151030
  20. SANCOBA [Concomitant]
     Active Substance: CYANOCOBALAMIN
     Indication: DRY EYE
     Dosage: SANCOBA OPHTHALMIC SOLUTION 0.02%
     Route: 047
  21. MAGMITT [Concomitant]
     Active Substance: MAGNESIUM OXIDE
     Dosage: SELECT IF ONGOING=YES
     Route: 065
     Dates: start: 20151227
  22. BEVACIZUMAB [Suspect]
     Active Substance: BEVACIZUMAB
     Indication: NON-SMALL CELL LUNG CANCER
     Dosage: MOST RECENT DOSE PRIOR TO THE EVENT ON 22/DEC/2015
     Route: 042
     Dates: start: 20151030
  23. MAGMITT [Concomitant]
     Active Substance: MAGNESIUM OXIDE
     Indication: CONSTIPATION
     Route: 065
     Dates: start: 20151206, end: 20151206
  24. VASOLAN [Concomitant]
     Active Substance: VERAPAMIL HYDROCHLORIDE
     Route: 065
     Dates: start: 20151221
  25. ATEZOLIZUMAB [Suspect]
     Active Substance: ATEZOLIZUMAB
     Indication: NON-SMALL CELL LUNG CANCER
     Dosage: MOST RECENT DOSE PRIOR TO THE EVENT ON 22/DEC/2015
     Route: 042
     Dates: start: 20151030
  26. LOXOPROFEN EMEC [Concomitant]
     Active Substance: LOXOPROFEN
     Indication: PYREXIA
  27. GRAN [Concomitant]
     Active Substance: FILGRASTIM
     Dosage: SELECT IF ONGOING=NO
     Route: 065
     Dates: start: 20160104, end: 20160106
  28. VASOLAN [Concomitant]
     Active Substance: VERAPAMIL HYDROCHLORIDE
     Indication: ATRIAL TACHYCARDIA
     Route: 065
     Dates: start: 20151221, end: 20151221
  29. VEEN-D [Concomitant]
     Active Substance: DEXTROSE
     Indication: DECREASED APPETITE
     Route: 065
     Dates: start: 20151225, end: 20151230

REACTIONS (1)
  - Platelet count decreased [Recovered/Resolved]

NARRATIVE: CASE EVENT DATE: 20151226
